FAERS Safety Report 6601289-0 (Version None)
Quarter: 2010Q1

REPORT INFORMATION
  Report Type: 
  Country: None (occurrence: None)
  Receive Date: 20100225
  Receipt Date: 20100219
  Transmission Date: 20100710
  Serious: Yes (Hospitalization)
  Sender: FDA-Public Use
  Company Number: US-PERRIGO-10US007249

PATIENT
  Sex: Male
  Weight: 68.934 kg

DRUGS (1)
  1. NAPROXEN SODIUM [Suspect]
     Indication: TOOTHACHE
     Dosage: 220 MG, PRN
     Route: 048
     Dates: start: 20100118

REACTIONS (3)
  - GINGIVAL INFECTION [None]
  - OSTEOMYELITIS [None]
  - SWELLING FACE [None]
